FAERS Safety Report 4405341-X (Version None)
Quarter: 2004Q2

REPORT INFORMATION
  Report Type: 
  Country: None (occurrence: None)
  Receive Date: 20040618
  Receipt Date: 20040503
  Transmission Date: 20050107
  Serious: No
  Sender: FDA-Public Use
  Company Number: US-JNJFOC-20040501001

PATIENT
  Age: 31 Year
  Sex: Female
  Weight: 61.2356 kg

DRUGS (4)
  1. ORTHO EVRA [Suspect]
     Indication: CONTRACEPTION
     Dosage: 1 DOSE (S), 3 IN 4 WEEK, TRANSDERMAL
     Route: 062
     Dates: start: 20040104
  2. SYNTHROID [Concomitant]
  3. ISONIAZID [Concomitant]
  4. VITAMIN B6 [Concomitant]

REACTIONS (3)
  - BREAST TENDERNESS [None]
  - HYPERTROPHY BREAST [None]
  - HYPOAESTHESIA [None]
